FAERS Safety Report 10412549 (Version 1)
Quarter: 2014Q2

REPORT INFORMATION
  Report Type: Spontaneous
  Country: US (occurrence: None)
  Receive Date: 20140604
  Receipt Date: 20140604
  Transmission Date: 20141212
  Serious: Yes (Hospitalization)
  Sender: FDA-Public Use
  Company Number: 163-POMAL-14033065

PATIENT
  Age: 63 Year
  Sex: Female

DRUGS (5)
  1. POMALYST (POMALIDOMIDE) (4 MILLIGRAM, CAPSULES) [Suspect]
     Indication: PLASMA CELL MYELOMA
     Dosage: 4 MG, 21 IN 21 D, PO
     Dates: start: 201305
  2. ACYCLOVIR(ACICLOVIR)(UNKNOWN) [Concomitant]
  3. COUMADIN(WARFARIN SODIUM)(UNKNOWN) [Concomitant]
  4. DEXAMETHASONE(DEXAMETHASONE)(UNKNOWN) [Concomitant]
  5. OXYCODONE-ACETAMINOPHEN(OXYCOCET)(UNKNOWN) [Concomitant]

REACTIONS (1)
  - Pneumonia [None]
